FAERS Safety Report 4874641-1 (Version None)
Quarter: 2006Q1

REPORT INFORMATION
  Report Type: 
  Country: None (occurrence: None)
  Receive Date: 20060106
  Receipt Date: 20050217
  Transmission Date: 20060701
  Serious: Yes (Hospitalization, Other)
  Sender: FDA-Public Use
  Company Number: US-MERCK-0502USA02614

PATIENT
  Age: 63 Year
  Sex: Female
  Weight: 89 kg

DRUGS (1)
  1. VIOXX [Suspect]
     Indication: ARTHRALGIA
     Route: 048
     Dates: start: 20020101, end: 20030318

REACTIONS (4)
  - ARTHROPATHY [None]
  - CORONARY ARTERY INSUFFICIENCY [None]
  - MYOCARDIAL INFARCTION [None]
  - TENDONITIS [None]
